FAERS Safety Report 7038400-6 (Version None)
Quarter: 2010Q4

REPORT INFORMATION
  Report Type: 
  Country: None (occurrence: None)
  Receive Date: 20101011
  Receipt Date: 20100401
  Transmission Date: 20110411
  Serious: Yes (Hospitalization, Other)
  Sender: FDA-Public Use
  Company Number: US-PFIZER INC-2010021483

PATIENT
  Sex: Female
  Weight: 70.306 kg

DRUGS (7)
  1. NEURONTIN [Suspect]
     Indication: MULTIPLE SCLEROSIS
     Dosage: 3200 MG, 1X/DAY
     Route: 048
     Dates: start: 19981101
  2. NEURONTIN [Suspect]
     Indication: HYPOAESTHESIA
  3. TOPAMAX [Concomitant]
     Dosage: UNK
  4. ACCUPRIL [Concomitant]
     Dosage: UNK
  5. DIAZEPAM [Concomitant]
     Dosage: UNK
  6. FLEXERIL [Concomitant]
     Dosage: UNK
  7. INTERFERON BETA-1A [Concomitant]
     Dosage: UNK

REACTIONS (11)
  - CYSTITIS [None]
  - EAR PAIN [None]
  - HEARING IMPAIRED [None]
  - HICCUPS [None]
  - HYPERACUSIS [None]
  - JOINT STIFFNESS [None]
  - MUSCLE TWITCHING [None]
  - OEDEMA PERIPHERAL [None]
  - PAIN IN EXTREMITY [None]
  - PSYCHOTIC DISORDER [None]
  - VISUAL IMPAIRMENT [None]
